FAERS Safety Report 13947957 (Version 1)
Quarter: 2017Q3

REPORT INFORMATION
  Report Type: Spontaneous
  Country: US (occurrence: US)
  Receive Date: 20170908
  Receipt Date: 20170908
  Transmission Date: 20171128
  Serious: No
  Sender: FDA-Public Use
  Company Number: US-PFIZER INC-2017382793

PATIENT
  Age: 52 Year
  Sex: Female

DRUGS (1)
  1. XELJANZ XR [Suspect]
     Active Substance: TOFACITINIB CITRATE
     Dosage: 11 MG, UNK

REACTIONS (21)
  - Haematocrit decreased [Unknown]
  - Joint stiffness [Unknown]
  - Dyspepsia [Unknown]
  - Back pain [Unknown]
  - Weight increased [Unknown]
  - Anxiety [Unknown]
  - Myalgia [Unknown]
  - Depression [Unknown]
  - Paraesthesia oral [Unknown]
  - Headache [Unknown]
  - Musculoskeletal discomfort [Unknown]
  - Swelling [Unknown]
  - Hypoaesthesia [Unknown]
  - Dry mouth [Unknown]
  - Red blood cell sedimentation rate increased [Unknown]
  - Blood bilirubin increased [Unknown]
  - Neck pain [Unknown]
  - Fatigue [Unknown]
  - Pain [Unknown]
  - Blood creatine increased [Unknown]
  - Fibromyalgia [Unknown]
